FAERS Safety Report 9440416 (Version 1)
Quarter: 2013Q3

REPORT INFORMATION
  Report Type: Spontaneous
  Country: FR (occurrence: FR)
  Receive Date: 20130805
  Receipt Date: 20130805
  Transmission Date: 20140515
  Serious: Yes (Hospitalization)
  Sender: FDA-Public Use
  Company Number: FR-PFIZER INC-2013221853

PATIENT
  Age: 99 Year
  Sex: Female

DRUGS (2)
  1. TRIFLUCAN [Suspect]
     Indication: OESOPHAGEAL CANDIDIASIS
     Dosage: UNK
     Route: 048
     Dates: start: 20130624, end: 20130701
  2. FUNGIZONE [Concomitant]
     Indication: OESOPHAGEAL CANDIDIASIS
     Dosage: UNK
     Dates: start: 20130617, end: 20130623

REACTIONS (1)
  - Pancytopenia [Recovered/Resolved]
